FAERS Safety Report 26079586 (Version 1)
Quarter: 2025Q4

REPORT INFORMATION
  Report Type: Spontaneous
  Country: US (occurrence: US)
  Receive Date: 20251123
  Receipt Date: 20251123
  Transmission Date: 20260118
  Serious: No
  Sender: NODEN PHARMA
  Company Number: US-ARIS GLOBAL-NOD202503-000051

PATIENT
  Age: 81 Year
  Sex: Female

DRUGS (2)
  1. ALISKIREN [Suspect]
     Active Substance: ALISKIREN
     Indication: Hypertension
     Dosage: UNKNOWN
     Route: 065
  2. ALISKIREN [Suspect]
     Active Substance: ALISKIREN
     Route: 065

REACTIONS (4)
  - Limb discomfort [Unknown]
  - Peripheral swelling [Unknown]
  - Condition aggravated [Unknown]
  - Drug ineffective [Unknown]
